FAERS Safety Report 9458791 (Version 1)
Quarter: 2013Q3

REPORT INFORMATION
  Report Type: Spontaneous
  Country: US (occurrence: US)
  Receive Date: 20130814
  Receipt Date: 20130814
  Transmission Date: 20140515
  Serious: Yes (Death, Life-Threatening, Hospitalization, Congenital Anomaly)
  Sender: FDA-Public Use
  Company Number: US-GLAXOSMITHKLINE-A0678469A

PATIENT
  Age: 0 Day
  Sex: Female
  Weight: 3.1 kg

DRUGS (2)
  1. PAXIL [Suspect]
     Indication: DEPRESSION
     Route: 064
     Dates: start: 2001, end: 2003
  2. PRENATAL VITAMINS [Concomitant]
     Route: 064

REACTIONS (51)
  - Congenital cardiovascular anomaly [Fatal]
  - Anencephaly [Unknown]
  - Injury [Unknown]
  - Pain [Unknown]
  - Anxiety [Unknown]
  - Deformity [Unknown]
  - Nervous system disorder [Unknown]
  - Anal atresia [Unknown]
  - Cleft palate [Unknown]
  - Aspiration [Unknown]
  - Hiatus hernia [Unknown]
  - Epilepsy [Unknown]
  - Ventricular septal defect [Unknown]
  - Factor V Leiden mutation [Unknown]
  - Blindness [Unknown]
  - Respiratory distress [Unknown]
  - Pyrexia [Unknown]
  - Gastrooesophageal reflux disease [Unknown]
  - Impaired gastric emptying [Unknown]
  - Pneumonia aspiration [Unknown]
  - Holoprosencephaly [Unknown]
  - Cyanosis [Unknown]
  - Dysphagia [Unknown]
  - Developmental delay [Unknown]
  - Failure to thrive [Unknown]
  - Vaginal fistula [Unknown]
  - Skin irritation [Unknown]
  - Dysmorphism [Unknown]
  - Pierre Robin syndrome [Unknown]
  - Micrognathia [Unknown]
  - Hypoacusis [Unknown]
  - Cardiac murmur [Unknown]
  - Hypoxia [Unknown]
  - Cardiomegaly [Unknown]
  - Pyrexia [Unknown]
  - Cough [Unknown]
  - Strabismus [Unknown]
  - Corneal scar [Unknown]
  - Heterophoria [Unknown]
  - Amblyopia [Unknown]
  - Apnoea [Unknown]
  - Atelectasis [Unknown]
  - Cellulitis [Unknown]
  - Microcephaly [Unknown]
  - Quadriparesis [Unknown]
  - Hypertonia [Unknown]
  - Hyperreflexia [Unknown]
  - Infection [Unknown]
  - Hydrocephalus [Unknown]
  - Congenital neurological disorder [Fatal]
  - Foetal exposure during pregnancy [Unknown]
